FAERS Safety Report 6915830-1 (Version None)
Quarter: 2010Q3

REPORT INFORMATION
  Report Type: 
  Country: None (occurrence: None)
  Receive Date: 20100810
  Receipt Date: 20100512
  Transmission Date: 20110219
  Serious: No
  Sender: FDA-Public Use
  Company Number: A0860899A

PATIENT
  Sex: Female

DRUGS (3)
  1. PAXIL [Suspect]
     Indication: DEPRESSION
     Route: 048
  2. SEROQUEL [Concomitant]
  3. UNSPECIFIED DRUG [Concomitant]

REACTIONS (1)
  - RESTLESS LEGS SYNDROME [None]
